FAERS Safety Report 9797857 (Version 1)
Quarter: 2014Q1

REPORT INFORMATION
  Report Type: Spontaneous
  Country: US (occurrence: None)
  Receive Date: 20140102
  Receipt Date: 20140102
  Transmission Date: 20141002
  Serious: Yes (Hospitalization)
  Sender: FDA-Public Use
  Company Number: None

PATIENT
  Age: 85 None
  Sex: Male
  Weight: 80.6 kg

DRUGS (2)
  1. ASPIRIN [Suspect]
     Route: 048
     Dates: start: 20090407, end: 20131223
  2. IBUPROFEN [Suspect]
     Indication: PAIN
     Route: 048
     Dates: start: 20130812

REACTIONS (4)
  - Large intestine polyp [None]
  - Anaemia [None]
  - Gastric haemorrhage [None]
  - Diverticulum intestinal [None]
